FAERS Safety Report 20219153 (Version 1)
Quarter: 2021Q4

REPORT INFORMATION
  Report Type: Spontaneous
  Country: CN (occurrence: CN)
  Receive Date: 20211222
  Receipt Date: 20211222
  Transmission Date: 20220303
  Serious: Yes (Hospitalization, Other)
  Sender: FDA-Public Use
  Company Number: CN-PFIZER INC-202101771084

PATIENT
  Age: 4 Year
  Sex: Male
  Weight: 17 kg

DRUGS (12)
  1. SOLU-MEDROL [Suspect]
     Active Substance: METHYLPREDNISOLONE SODIUM SUCCINATE
     Indication: Sepsis
     Dosage: 26 MG, 2X/DAY
     Route: 041
     Dates: start: 20211124, end: 20211127
  2. SOLU-MEDROL [Suspect]
     Active Substance: METHYLPREDNISOLONE SODIUM SUCCINATE
     Indication: Juvenile idiopathic arthritis
     Dosage: DOSE WAS HALVED
     Dates: start: 20211128
  3. SOLU-MEDROL [Suspect]
     Active Substance: METHYLPREDNISOLONE SODIUM SUCCINATE
     Indication: Haemophagocytic lymphohistiocytosis
  4. DEXTROSE [Concomitant]
     Active Substance: DEXTROSE
     Indication: Sepsis
     Dosage: 50 ML, 2X/DAY
     Route: 041
     Dates: start: 20211124, end: 20211126
  5. DEXTROSE [Concomitant]
     Active Substance: DEXTROSE
     Indication: Juvenile idiopathic arthritis
  6. DEXTROSE [Concomitant]
     Active Substance: DEXTROSE
     Indication: Haemophagocytic lymphohistiocytosis
  7. VANCOCIN [Concomitant]
     Active Substance: VANCOMYCIN HYDROCHLORIDE
     Indication: Sepsis
     Dosage: 0.26 G, 3X/DAY
     Route: 041
     Dates: start: 20211124, end: 20211126
  8. VANCOCIN [Concomitant]
     Active Substance: VANCOMYCIN HYDROCHLORIDE
     Indication: Juvenile idiopathic arthritis
  9. VANCOCIN [Concomitant]
     Active Substance: VANCOMYCIN HYDROCHLORIDE
     Indication: Haemophagocytic lymphohistiocytosis
  10. MEROPENEM [Concomitant]
     Active Substance: MEROPENEM
     Indication: Sepsis
     Dosage: 0.3 G, 3X/DAY
     Route: 041
     Dates: start: 20211124, end: 20211126
  11. MEROPENEM [Concomitant]
     Active Substance: MEROPENEM
     Indication: Juvenile idiopathic arthritis
  12. MEROPENEM [Concomitant]
     Active Substance: MEROPENEM
     Indication: Haemophagocytic lymphohistiocytosis

REACTIONS (1)
  - Ocular hypertension [Recovering/Resolving]

NARRATIVE: CASE EVENT DATE: 20211127
